FAERS Safety Report 24150966 (Version 1)
Quarter: 2024Q3

REPORT INFORMATION
  Report Type: Spontaneous
  Country: US (occurrence: US)
  Receive Date: 20240730
  Receipt Date: 20240730
  Transmission Date: 20241017
  Serious: Yes (Other)
  Sender: JOHNSON AND JOHNSON
  Company Number: US-JNJFOC-20240756629

PATIENT
  Age: 86 Year
  Sex: Female

DRUGS (1)
  1. XARELTO [Suspect]
     Active Substance: RIVAROXABAN
     Indication: Product used for unknown indication
     Route: 048

REACTIONS (10)
  - Impaired healing [Unknown]
  - Diarrhoea [Unknown]
  - Eye haemorrhage [Unknown]
  - Rash macular [Unknown]
  - Contusion [Unknown]
  - Headache [Unknown]
  - Skin haemorrhage [Unknown]
  - Dizziness [Unknown]
  - Product dose omission issue [Unknown]
  - Asthenia [Unknown]

NARRATIVE: CASE EVENT DATE: 20240720
